FAERS Safety Report 9520622 (Version 1)
Quarter: 2013Q3

REPORT INFORMATION
  Report Type: Spontaneous
  Country: US (occurrence: US)
  Receive Date: 20130913
  Receipt Date: 20130913
  Transmission Date: 20140515
  Serious: No
  Sender: FDA-Public Use
  Company Number: US-009507513-1309USA004836

PATIENT
  Age: 54 Year
  Sex: Female

DRUGS (1)
  1. COSOPT [Suspect]
     Indication: INTRAOCULAR PRESSURE TEST
     Dosage: ONE DROP IN THE RIGHT EYE ONCE A DAY
     Route: 047
     Dates: start: 201305, end: 201307

REACTIONS (3)
  - Dysgeusia [Recovered/Resolved]
  - Eye irritation [Recovered/Resolved]
  - Eye pain [Recovered/Resolved]
